FAERS Safety Report 10706559 (Version 1)
Quarter: 2015Q1

REPORT INFORMATION
  Report Type: Spontaneous
  Country: US (occurrence: None)
  Receive Date: 20150109
  Receipt Date: 20150109
  Transmission Date: 20150721
  Serious: Yes (Other)
  Sender: FDA-Public Use
  Company Number: US-H14001-14-01895

PATIENT
  Age: 69 Year
  Sex: Female

DRUGS (2)
  1. ARGATROBAN. [Suspect]
     Active Substance: ARGATROBAN
     Indication: HEPARIN-INDUCED THROMBOCYTOPENIA
  2. HEPARIN (HEPARIN) (HEPARIN) [Concomitant]

REACTIONS (2)
  - Therapeutic response increased [None]
  - Activated partial thromboplastin time prolonged [None]
